FAERS Safety Report 12220790 (Version 4)
Quarter: 2018Q1

REPORT INFORMATION
  Report Type: Spontaneous
  Country: GB (occurrence: GB)
  Receive Date: 20160330
  Receipt Date: 20180323
  Transmission Date: 20180508
  Serious: Yes (Other)
  Sender: FDA-Public Use
  Company Number: GB-TEVA-646524ACC

PATIENT
  Age: 60 Year
  Sex: Male

DRUGS (4)
  1. DEXIMUNE [Suspect]
     Active Substance: CYCLOSPORINE
  2. MYFENAX [Suspect]
     Active Substance: MYCOPHENOLATE MOFETIL
     Route: 065
  3. PREDNISOLONE. [Suspect]
     Active Substance: PREDNISOLONE
     Route: 065
  4. DEXIMUNE [Suspect]
     Active Substance: CYCLOSPORINE
     Route: 065

REACTIONS (2)
  - Renal failure [Unknown]
  - Kidney infection [Unknown]
